FAERS Safety Report 24166606 (Version 1)
Quarter: 2024Q3

REPORT INFORMATION
  Report Type: Spontaneous
  Country: FR (occurrence: FR)
  Receive Date: 20240802
  Receipt Date: 20240802
  Transmission Date: 20241017
  Serious: Yes (Hospitalization, Other)
  Sender: RANBAXY
  Company Number: FR-AFSSAPS-SE2024000398

PATIENT
  Age: 60 Year
  Sex: Female
  Weight: 50.4 kg

DRUGS (1)
  1. IBUPROFEN [Suspect]
     Active Substance: IBUPROFEN
     Indication: Product used for unknown indication
     Dosage: 1 DOSAGE FORM, TOTAL 1
     Route: 048

REACTIONS (2)
  - Erythema multiforme [Recovered/Resolved]
  - Eosinophilia [Not Recovered/Not Resolved]

NARRATIVE: CASE EVENT DATE: 20240112
